FAERS Safety Report 5271895-7 (Version None)
Quarter: 2007Q1

REPORT INFORMATION
  Report Type: 
  Country: None (occurrence: None)
  Receive Date: 20070316
  Receipt Date: 20070302
  Transmission Date: 20070707
  Serious: Yes (Other)
  Sender: FDA-Public Use
  Company Number: PHBS2007BR04094

PATIENT
  Age: 62 Year
  Sex: Male
  Weight: 106 kg

DRUGS (1)
  1. LAMISIL [Suspect]
     Indication: FUNGAL INFECTION
     Dosage: QD, TOPICAL
     Route: 061
     Dates: start: 20070228, end: 20070301

REACTIONS (3)
  - APPLICATION SITE IRRITATION [None]
  - BLISTER [None]
  - BURNING SENSATION [None]
